FAERS Safety Report 15368325 (Version 6)
Quarter: 2020Q2

REPORT INFORMATION
  Report Type: Spontaneous
  Country: CA (occurrence: CA)
  Receive Date: 20180910
  Receipt Date: 20200416
  Transmission Date: 20200713
  Serious: Yes (Hospitalization)
  Sender: FDA-Public Use
  Company Number: CA-ACTELION-A-US2018-178477

PATIENT
  Age: 27 Year
  Sex: Female
  Weight: 85 kg

DRUGS (6)
  1. ADCIRCA [Interacting]
     Active Substance: TADALAFIL
     Indication: PRODUCT USED FOR UNKNOWN INDICATION
     Dosage: UNK
     Route: 065
     Dates: end: 20180914
  2. RIVAROXABAN [Concomitant]
     Active Substance: RIVAROXABAN
  3. CARIPUL [Suspect]
     Active Substance: EPOPROSTENOL
     Indication: PULMONARY ARTERIAL HYPERTENSION
     Dosage: 30000 NG/ML, 2-10NG/KG/MIN
     Route: 042
     Dates: start: 20180820
  4. TYLENOL [Concomitant]
     Active Substance: ACETAMINOPHEN
     Dosage: UNK, PRN
  5. ASA [Concomitant]
     Active Substance: ASPIRIN
  6. SILDENAFIL. [Concomitant]
     Active Substance: SILDENAFIL

REACTIONS (8)
  - Decreased appetite [Unknown]
  - Drug interaction [Unknown]
  - Live birth [Unknown]
  - Premature baby [Unknown]
  - Diarrhoea [Unknown]
  - Nausea [Unknown]
  - Exposure during pregnancy [Unknown]
  - Vomiting [Unknown]

NARRATIVE: CASE EVENT DATE: 20180928
